FAERS Safety Report 9276123 (Version 1)
Quarter: 2013Q2

REPORT INFORMATION
  Report Type: Spontaneous
  Country: US (occurrence: None)
  Receive Date: 20130502
  Receipt Date: 20130502
  Transmission Date: 20140414
  Serious: No
  Sender: FDA-Public Use
  Company Number: None

PATIENT
  Sex: Female

DRUGS (1)
  1. XELJANZ [Suspect]
     Route: 048
     Dates: start: 20130322

REACTIONS (3)
  - Nausea [None]
  - Dyspnoea [None]
  - Tinnitus [None]
